FAERS Safety Report 25013247 (Version 1)
Quarter: 2025Q1

REPORT INFORMATION
  Report Type: Spontaneous
  Country: US (occurrence: US)
  Receive Date: 20250226
  Receipt Date: 20250226
  Transmission Date: 20250409
  Serious: No
  Sender: ROCHE
  Company Number: US-ROCHE-10000210258

PATIENT
  Age: 73 Year
  Sex: Female

DRUGS (1)
  1. XOLAIR [Suspect]
     Active Substance: OMALIZUMAB
     Indication: Idiopathic urticaria
     Route: 058

REACTIONS (6)
  - Visual impairment [Unknown]
  - Cataract [Unknown]
  - Stress fracture [Unknown]
  - Dizziness [Unknown]
  - Ear disorder [Unknown]
  - Osteoporosis [Unknown]
